FAERS Safety Report 5326338-1 (Version None)
Quarter: 2007Q2

REPORT INFORMATION
  Report Type: 
  Country: None (occurrence: None)
  Receive Date: 20070516
  Receipt Date: 20070511
  Transmission Date: 20071010
  Serious: Yes (Life-Threatening, Hospitalization)
  Sender: FDA-Public Use
  Company Number: A0648199A

PATIENT
  Age: 7 Year
  Sex: Male
  Weight: 22.2 kg

DRUGS (6)
  1. FLIXOTIDE [Suspect]
     Indication: ASTHMA
     Dosage: 500UG TWICE PER DAY
     Route: 055
  2. SERETIDE [Suspect]
     Indication: ASTHMA
     Route: 055
  3. MONTELUKAST SODIUM [Concomitant]
     Indication: ASTHMA
  4. SALMETEROL [Concomitant]
     Indication: ASTHMA
  5. SALBUTAMOL [Concomitant]
     Indication: ASTHMA
  6. SLO-PHYLLIN [Concomitant]
     Indication: ASTHMA

REACTIONS (19)
  - ABDOMINAL PAIN [None]
  - ACTH STIMULATION TEST ABNORMAL [None]
  - ADRENAL INSUFFICIENCY [None]
  - ADRENAL SUPPRESSION [None]
  - BLOOD ANTIDIURETIC HORMONE INCREASED [None]
  - BLOOD CORTICOTROPHIN ABNORMAL [None]
  - BLOOD CORTISOL DECREASED [None]
  - BRAIN OEDEMA [None]
  - ENCEPHALOPATHY [None]
  - HYPERTRICHOSIS [None]
  - HYPONATRAEMIA [None]
  - NERVOUS SYSTEM DISORDER [None]
  - OVERDOSE [None]
  - RENAL IMPAIRMENT [None]
  - SOMNOLENCE [None]
  - STREPTOCOCCAL IDENTIFICATION TEST POSITIVE [None]
  - STREPTOCOCCAL INFECTION [None]
  - UNDERWEIGHT [None]
  - VOMITING [None]
